FAERS Safety Report 9823829 (Version 2)
Quarter: 2014Q1

REPORT INFORMATION
  Report Type: Spontaneous
  Country: US (occurrence: US)
  Receive Date: 20140116
  Receipt Date: 20140116
  Transmission Date: 20141002
  Serious: No
  Sender: FDA-Public Use
  Company Number: US-GILEAD-2011-0037687

PATIENT
  Age: 49 Year
  Sex: Male

DRUGS (4)
  1. LETAIRIS [Suspect]
     Indication: PULMONARY HYPERTENSION
     Route: 048
     Dates: start: 20100920, end: 20110317
  2. LETAIRIS [Suspect]
     Indication: ATRIAL SEPTAL DEFECT
  3. LETAIRIS [Suspect]
     Indication: SYSTEMIC-PULMONARY ARTERY SHUNT
  4. ADCIRCA [Concomitant]

REACTIONS (1)
  - Gravitational oedema [Unknown]
